FAERS Safety Report 17652511 (Version 3)
Quarter: 2020Q2

REPORT INFORMATION
  Report Type: Spontaneous
  Country: JP (occurrence: JP)
  Receive Date: 20200409
  Receipt Date: 20200630
  Transmission Date: 20200713
  Serious: Yes (Life-Threatening)
  Sender: FDA-Public Use
  Company Number: JP-VIFOR (INTERNATIONAL) INC.-VIT-2020-01776

PATIENT
  Age: 61 Year
  Sex: Male
  Weight: 90 kg

DRUGS (4)
  1. MIRCERA [Suspect]
     Active Substance: METHOXY POLYETHYLENE GLYCOL-EPOETIN BETA
     Indication: NEPHROGENIC ANAEMIA
     Route: 042
     Dates: start: 20200116, end: 20200116
  2. HANP [Suspect]
     Active Substance: CARPERITIDE
     Indication: CARDIAC FAILURE ACUTE
     Dosage: 0.025 VIAL/DAY
     Route: 041
     Dates: start: 20200116, end: 20200116
  3. TAKELDA [Concomitant]
     Active Substance: ASPIRIN\LANSOPRAZOLE
     Route: 048
     Dates: start: 20200116
  4. TERAMURO [Concomitant]
     Route: 048

REACTIONS (6)
  - Feeling abnormal [Unknown]
  - Anaphylactic reaction [Recovering/Resolving]
  - Nausea [Unknown]
  - Ventricular fibrillation [Unknown]
  - Loss of consciousness [Unknown]
  - Vomiting [Unknown]

NARRATIVE: CASE EVENT DATE: 20200116
